FAERS Safety Report 10163776 (Version 2)
Quarter: 2014Q3

REPORT INFORMATION
  Report Type: Report from Study
  Country: DE (occurrence: NL)
  Receive Date: 20140509
  Receipt Date: 20140724
  Transmission Date: 20150326
  Serious: Yes (Death, Hospitalization, Other)
  Sender: FDA-Public Use
  Company Number: DE-ACTELION-A-US2010-98410

PATIENT
  Age: 78 Year
  Sex: Female

DRUGS (1)
  1. VENTAVIS [Suspect]
     Active Substance: ILOPROST
     Indication: PRODUCT USED FOR UNKNOWN INDICATION
     Dosage: 6XDAILY
     Route: 055
     Dates: start: 20100608

REACTIONS (15)
  - Pain in extremity [Unknown]
  - Temperature intolerance [Unknown]
  - Urinary tract infection [Unknown]
  - Right ventricular failure [Fatal]
  - Dyspnoea [Unknown]
  - Discomfort [Unknown]
  - Inflammation [Unknown]
  - Infection [Unknown]
  - Nausea [Unknown]
  - Eye inflammation [Unknown]
  - Diarrhoea [Unknown]
  - Hospitalisation [Unknown]
  - Pulmonary congestion [Unknown]
  - Gout [Unknown]
  - General physical health deterioration [Unknown]

NARRATIVE: CASE EVENT DATE: 201202
